FAERS Safety Report 8486132-X (Version None)
Quarter: 2012Q3

REPORT INFORMATION
  Report Type: 
  Country: None (occurrence: None)
  Receive Date: 20120703
  Receipt Date: 20120626
  Transmission Date: 20120928
  Serious: Yes (Death, Hospitalization)
  Sender: FDA-Public Use
  Company Number: US-BAXTER-2012BAX008306

PATIENT
  Sex: Female

DRUGS (2)
  1. EXTRANEAL [Suspect]
     Route: 033
     Dates: start: 20111122
  2. DIANEAL [Suspect]
     Route: 033
     Dates: start: 20111122

REACTIONS (3)
  - CARDIAC DISORDER [None]
  - THROMBOSIS [None]
  - DEATH [None]
